FAERS Safety Report 20556491 (Version 2)
Quarter: 2024Q3

REPORT INFORMATION
  Report Type: Spontaneous
  Country: US (occurrence: US)
  Receive Date: 20220307
  Receipt Date: 20240922
  Transmission Date: 20241016
  Serious: Yes (Disabling, Other)
  Sender: ORGANON
  Company Number: US-ORGANON-O2203USA000361

PATIENT
  Sex: Female

DRUGS (2)
  1. SINGULAIR [Suspect]
     Active Substance: MONTELUKAST SODIUM
     Indication: Hypersensitivity
     Dosage: 5 MILLIGRAM
     Route: 048
     Dates: start: 2007, end: 202004
  2. SINGULAIR [Suspect]
     Active Substance: MONTELUKAST SODIUM
     Indication: Asthma
     Dosage: 10 MILLIGRAM
     Route: 048
     Dates: start: 2007, end: 202004

REACTIONS (49)
  - Neuropsychological symptoms [Not Recovered/Not Resolved]
  - Depression [Not Recovered/Not Resolved]
  - Seizure [Unknown]
  - Pseudostroke [Unknown]
  - Loss of consciousness [Unknown]
  - Hallucination, visual [Unknown]
  - Suicidal ideation [Unknown]
  - Suicide attempt [Unknown]
  - Sympathetic posterior cervical syndrome [Unknown]
  - Syncope [Unknown]
  - Vestibular neuronitis [Unknown]
  - Post-traumatic stress disorder [Unknown]
  - Anxiety [Unknown]
  - Agitation [Unknown]
  - Confusional state [Unknown]
  - Amnesia [Unknown]
  - Panic attack [Unknown]
  - Dissociative identity disorder [Unknown]
  - Tic [Unknown]
  - Sleep disorder [Unknown]
  - Nightmare [Unknown]
  - Headache [Unknown]
  - Pain [Unknown]
  - Pineal gland cyst [Unknown]
  - Sleep paralysis [Unknown]
  - Migraine [Unknown]
  - Somnambulism [Unknown]
  - Visual impairment [Unknown]
  - Alice in wonderland syndrome [Unknown]
  - Vertigo [Unknown]
  - Dysphonia [Unknown]
  - Crying [Unknown]
  - Abnormal behaviour [Unknown]
  - Disturbance in sexual arousal [Unknown]
  - Visual impairment [Unknown]
  - Balance disorder [Unknown]
  - Disturbance in attention [Unknown]
  - Memory impairment [Unknown]
  - Disorientation [Unknown]
  - Restlessness [Unknown]
  - Tremor [Unknown]
  - Aggression [Unknown]
  - Anger [Unknown]
  - Dyspnoea [Unknown]
  - Vocal cord dysfunction [Unknown]
  - Vision blurred [Unknown]
  - Conversion disorder [Unknown]
  - Dizziness [Unknown]
  - Neck pain [Unknown]

NARRATIVE: CASE EVENT DATE: 20070101
